FAERS Safety Report 6966054-3 (Version None)
Quarter: 2010Q3

REPORT INFORMATION
  Report Type: 
  Country: None (occurrence: None)
  Receive Date: 20100903
  Receipt Date: 20100615
  Transmission Date: 20110219
  Serious: No
  Sender: FDA-Public Use
  Company Number: A0865269A

PATIENT
  Age: 22 Year
  Sex: Female

DRUGS (3)
  1. LAMICTAL [Suspect]
     Indication: BIPOLAR DISORDER
     Dosage: 25MG PER DAY
     Route: 048
     Dates: start: 20100401
  2. PROPRANOLOL [Concomitant]
  3. CITALOPRAM HYDROBROMIDE [Concomitant]

REACTIONS (4)
  - PHARYNGEAL OEDEMA [None]
  - TREMOR [None]
  - URTICARIA [None]
  - WHITE BLOOD CELL COUNT DECREASED [None]
